FAERS Safety Report 8773366 (Version 2)
Quarter: 2012Q4

REPORT INFORMATION
  Report Type: 
  Country: US (occurrence: US)
  Receive Date: 20120907
  Receipt Date: 20121114
  Transmission Date: 20130627
  Serious: No
  Sender: FDA-Public Use
  Company Number: US-009507513-1208USA010507

PATIENT
  Age: 47 Year
  Sex: Male
  Weight: 83.9 kg

DRUGS (4)
  1. CLARITIN-D 24 HOUR [Suspect]
     Indication: RHINORRHOEA
     Dosage: 10 mg, bid
     Route: 048
     Dates: start: 20120814
  2. CLARITIN-D 24 HOUR [Suspect]
     Indication: HYPERSENSITIVITY
     Dosage: 10 mg, Once
     Route: 048
     Dates: start: 20120815
  3. CLARITIN-D 24 HOUR [Suspect]
     Dosage: 10 mg, qd
     Route: 048
     Dates: start: 201205, end: 201206
  4. LISINOPRIL [Concomitant]
     Indication: HYPERTENSION
     Dosage: UNK, Unknown

REACTIONS (3)
  - Condition aggravated [Unknown]
  - Therapeutic product ineffective [Unknown]
  - Overdose [Unknown]
